FAERS Safety Report 7505322-3 (Version None)
Quarter: 2011Q2

REPORT INFORMATION
  Report Type: 
  Country: None (occurrence: None)
  Receive Date: 20110526
  Receipt Date: 20110516
  Transmission Date: 20111010
  Serious: Yes (Other)
  Sender: FDA-Public Use
  Company Number: US-AMGEN-USASP2011025234

PATIENT
  Age: 5 Year
  Sex: Male

DRUGS (2)
  1. NPLATE [Suspect]
     Indication: IDIOPATHIC THROMBOCYTOPENIC PURPURA
     Dosage: 10 A?G/KG, UNK
     Dates: start: 20100201
  2. NPLATE [Suspect]
     Dates: start: 20100201

REACTIONS (5)
  - MEGAKARYOCYTES INCREASED [None]
  - MARROW HYPERPLASIA [None]
  - CONTUSION [None]
  - BONE MARROW RETICULIN FIBROSIS [None]
  - LEUKOCYTOSIS [None]
